FAERS Safety Report 9772062 (Version 2)
Quarter: 2013Q4

REPORT INFORMATION
  Report Type: Spontaneous
  Country: US (occurrence: US)
  Receive Date: 20131219
  Receipt Date: 20131230
  Transmission Date: 20140711
  Serious: No
  Sender: FDA-Public Use
  Company Number: US-009507513-1312USA008547

PATIENT
  Sex: 0

DRUGS (1)
  1. NEXPLANON [Suspect]
     Dosage: 1 ROD PER 3 YEARS
     Route: 059
     Dates: start: 20130925

REACTIONS (2)
  - Device breakage [Unknown]
  - Road traffic accident [Unknown]
